FAERS Safety Report 16865373 (Version 1)
Quarter: 2019Q3

REPORT INFORMATION
  Report Type: Spontaneous
  Country: DK (occurrence: DK)
  Receive Date: 20190930
  Receipt Date: 20190930
  Transmission Date: 20191005
  Serious: Yes (Hospitalization)
  Sender: FDA-Public Use
  Company Number: DK-TEVA-2019-DK-1114073

PATIENT
  Age: 32 Year
  Sex: Female

DRUGS (10)
  1. ZOLPIDEM [Suspect]
     Active Substance: ZOLPIDEM TARTRATE
     Indication: INSOMNIA
     Dosage: IN THE PERIOD MAR-MAY2016, TAKEN UP TO 200-220 MG DAILY
     Route: 048
     Dates: start: 20150907
  2. ORPHENADRINE [Suspect]
     Active Substance: ORPHENADRINE
     Indication: PRODUCT USED FOR UNKNOWN INDICATION
     Route: 048
     Dates: start: 20160404
  3. RISPERIDONE. [Suspect]
     Active Substance: RISPERIDONE
     Indication: ANXIETY
     Route: 048
     Dates: start: 20151208, end: 20160519
  4. ALPRAZOLAM. [Suspect]
     Active Substance: ALPRAZOLAM
     Indication: SEDATION
     Dosage: TAKEN UP TO 6-8 MG DAILY DURING THE PERIOD MAR-MAY 2016
     Route: 048
     Dates: start: 20150208
  5. SERTRALINE [Concomitant]
     Active Substance: SERTRALINE HYDROCHLORIDE
     Indication: OBSESSIVE-COMPULSIVE DISORDER
     Dosage: DOSAGE: VARYING. STRENGTH: VARYING.
     Route: 048
  6. OLANZAPINE. [Suspect]
     Active Substance: OLANZAPINE
     Indication: ANXIETY
     Dosage: DOSE: START 15 MG. SAT DOWN TO 5MGX2 ON 20APR2016. ON MAY 19, 2016 SHE TOOK 50 MG DGL
     Route: 048
     Dates: start: 20160413, end: 20160519
  7. QUETIAPINE. [Suspect]
     Active Substance: QUETIAPINE
     Indication: OBSESSIVE-COMPULSIVE DISORDER
     Dosage: IN THE PERIOD MAR-MAY2016, TAKEN UP TO 5-700 MG DAILY
     Route: 048
     Dates: start: 20151214, end: 20160519
  8. METHYLPHENIDATE. [Concomitant]
     Active Substance: METHYLPHENIDATE
     Indication: ATTENTION DEFICIT/HYPERACTIVITY DISORDER
     Dosage: DOSAGE: VARYING. STRENGTH: VARYING.
     Route: 048
  9. ZOPICLONE [Suspect]
     Active Substance: ZOPICLONE
     Indication: INSOMNIA
     Dosage: DOSE: 5 MG DAILY
     Route: 048
     Dates: start: 2016
  10. CHLORPROTHIXENE [Suspect]
     Active Substance: CHLORPROTHIXENE
     Indication: SEDATION
     Route: 048
     Dates: start: 20151019, end: 20160519

REACTIONS (16)
  - Mania [Recovered/Resolved]
  - Obsessive-compulsive disorder [Not Recovered/Not Resolved]
  - Nausea [Recovered/Resolved]
  - Rash [Recovered/Resolved]
  - Communication disorder [Recovered/Resolved]
  - Memory impairment [Recovered/Resolved]
  - Constipation [Recovered/Resolved]
  - Decreased appetite [Recovered/Resolved]
  - Weight decreased [Unknown]
  - Intentional product misuse [Recovered/Resolved]
  - Respiratory disorder [Recovered/Resolved]
  - Skin wound [Recovered/Resolved]
  - Dry mouth [Recovered/Resolved]
  - Muscle spasms [Recovered/Resolved]
  - Restlessness [Recovered/Resolved]
  - Anxiety [Not Recovered/Not Resolved]

NARRATIVE: CASE EVENT DATE: 201603
